FAERS Safety Report 10053410 (Version 1)
Quarter: 2014Q2

REPORT INFORMATION
  Report Type: Spontaneous
  Country: IT (occurrence: IT)
  Receive Date: 20140402
  Receipt Date: 20140402
  Transmission Date: 20141212
  Serious: Yes (Hospitalization)
  Sender: FDA-Public Use
  Company Number: IT-ASTRAZENECA-2014SE21424

PATIENT
  Age: 26308 Day
  Sex: Male

DRUGS (13)
  1. SEROQUEL [Suspect]
     Indication: PSYCHOMOTOR HYPERACTIVITY
     Route: 048
     Dates: start: 20130910, end: 20130918
  2. RIVOTRIL [Suspect]
     Indication: PSYCHOMOTOR HYPERACTIVITY
     Route: 065
  3. TRITTICO [Suspect]
     Indication: PSYCHOMOTOR HYPERACTIVITY
     Route: 065
     Dates: start: 20130910, end: 20130918
  4. METOCLOPRAMIDE [Concomitant]
  5. RANITIDINE [Concomitant]
  6. LEVOFLOXACIN [Concomitant]
  7. CARVEDILOL [Concomitant]
  8. ALLOPURINOL [Concomitant]
  9. LANTUS [Concomitant]
  10. CLEXANE [Concomitant]
  11. SPIRIVA [Concomitant]
  12. SERETIDE [Concomitant]
  13. HUMALOG [Concomitant]

REACTIONS (1)
  - Sopor [Recovering/Resolving]
